FAERS Safety Report 5078438-1 (Version None)
Quarter: 2006Q3

REPORT INFORMATION
  Report Type: 
  Country: None (occurrence: None)
  Receive Date: 20060811
  Receipt Date: 20060802
  Transmission Date: 20061208
  Serious: Yes (Other)
  Sender: FDA-Public Use
  Company Number: US-BRISTOL-MYERS SQUIBB COMPANY-13464052

PATIENT
  Age: 24 Year
  Sex: Female
  Weight: 82 kg

DRUGS (2)
  1. DEFINITY [Suspect]
     Indication: CARDIAC STRESS TEST
     Dates: start: 20060802, end: 20060802
  2. ANTIDEPRESSANT [Concomitant]

REACTIONS (4)
  - ABDOMINAL PAIN [None]
  - DYSPNOEA [None]
  - URTICARIA [None]
  - VENTRICULAR EXTRASYSTOLES [None]
